FAERS Safety Report 6779912-X (Version None)
Quarter: 2010Q2

REPORT INFORMATION
  Report Type: 
  Country: None (occurrence: None)
  Receive Date: 20100618
  Receipt Date: 20100608
  Transmission Date: 20101027
  Serious: Yes (Other)
  Sender: FDA-Public Use
  Company Number: JP-MERCK-1006USA01729

PATIENT
  Age: 58 Year
  Sex: Male

DRUGS (4)
  1. HYZAAR [Suspect]
     Indication: HYPERTENSION
     Route: 048
     Dates: start: 20090610, end: 20090613
  2. HYZAAR [Suspect]
     Route: 048
     Dates: start: 20090615, end: 20090701
  3. ATELEC [Concomitant]
     Route: 048
     Dates: end: 20090610
  4. FLUITRAN [Concomitant]
     Route: 048
     Dates: end: 20090610

REACTIONS (1)
  - SHOCK [None]
